FAERS Safety Report 6570474-9 (Version None)
Quarter: 2010Q1

REPORT INFORMATION
  Report Type: 
  Country: None (occurrence: None)
  Receive Date: 20100204
  Receipt Date: 20090821
  Transmission Date: 20100710
  Serious: No
  Sender: FDA-Public Use
  Company Number: A0804646A

PATIENT
  Age: 60 Year
  Sex: Female

DRUGS (1)
  1. ARIXTRA [Suspect]
     Dosage: 5MG PER DAY
     Route: 058
     Dates: start: 20090808, end: 20090809

REACTIONS (3)
  - DRUG ADMINISTRATION ERROR [None]
  - INJECTION SITE REACTION [None]
  - LOCAL SWELLING [None]
